FAERS Safety Report 5089182-9 (Version None)
Quarter: 2006Q3

REPORT INFORMATION
  Report Type: 
  Country: None (occurrence: None)
  Receive Date: 20060727
  Receipt Date: 20060526
  Transmission Date: 20061208
  Serious: Yes (Other)
  Sender: FDA-Public Use
  Company Number: 2006070396

PATIENT
  Age: 85 Year
  Sex: Female

DRUGS (14)
  1. LYRICA [Suspect]
     Indication: RESTLESS LEGS SYNDROME
     Dosage: ORAL
     Route: 048
  2. HYDROCHLOROTHIAZIDE [Concomitant]
  3. PREMARIN [Concomitant]
  4. TRAMADOL HCL [Concomitant]
  5. VALSARTAN [Concomitant]
  6. XANAX [Concomitant]
  7. SALSALATE [Concomitant]
  8. LIPITOR [Concomitant]
  9. LEVOTHYROXINE SODIUM [Concomitant]
  10. POTASSIUM [Concomitant]
  11. ZOLOFT [Concomitant]
  12. FUROSEMIDE [Concomitant]
  13. LISINOPRIL [Concomitant]
  14. NORVASC [Concomitant]

REACTIONS (1)
  - RASH [None]
